FAERS Safety Report 10019214 (Version 1)
Quarter: 2014Q1

REPORT INFORMATION
  Report Type: Spontaneous
  Country: US (occurrence: None)
  Receive Date: 20140314
  Receipt Date: 20140314
  Transmission Date: 20141002
  Serious: Yes (Other)
  Sender: FDA-Public Use
  Company Number: None

PATIENT
  Age: 70 Year
  Sex: Male
  Weight: 104.33 kg

DRUGS (2)
  1. TRAVOPROST [Suspect]
     Indication: GLAUCOMA
     Route: 047
     Dates: start: 20140220, end: 20140221
  2. TRAVAPROST OPHTHALMIC SOLN USP, 2.5 ML [Concomitant]

REACTIONS (4)
  - Product substitution issue [None]
  - Ocular hyperaemia [None]
  - Eye irritation [None]
  - Eye pain [None]
